FAERS Safety Report 15341583 (Version 3)
Quarter: 2018Q3

REPORT INFORMATION
  Report Type: Spontaneous
  Country: US (occurrence: US)
  Receive Date: 20180901
  Receipt Date: 20180925
  Transmission Date: 20181010
  Serious: No
  Sender: FDA-Public Use
  Company Number: US-JNJFOC-20180810743

PATIENT
  Age: 55 Year
  Sex: Male
  Weight: 215.46 kg

DRUGS (2)
  1. TYLENOL 8 HR ARTHRITIS PAIN [Suspect]
     Active Substance: ACETAMINOPHEN
     Indication: BACK PAIN
     Route: 048
     Dates: start: 20180731
  2. TYLENOL 8 HR ARTHRITIS PAIN [Suspect]
     Active Substance: ACETAMINOPHEN
     Indication: BACK PAIN
     Route: 048
     Dates: start: 20180405

REACTIONS (7)
  - Inappropriate schedule of drug administration [Unknown]
  - Incorrect dose administered [Unknown]
  - Off label use [Unknown]
  - Product solubility abnormal [Unknown]
  - Medication residue present [Not Recovered/Not Resolved]
  - Inappropriate schedule of drug administration [Unknown]
  - Overdose [Unknown]

NARRATIVE: CASE EVENT DATE: 20180405
